FAERS Safety Report 8916584 (Version 2)
Quarter: 2012Q4

REPORT INFORMATION
  Report Type: Report from Study
  Country: JP (occurrence: JP)
  Receive Date: 20121120
  Receipt Date: 20121214
  Transmission Date: 20130627
  Serious: Yes (Other)
  Sender: FDA-Public Use
  Company Number: JP-VERTEX PHARMACEUTICAL INC.-AE-2012-006096

PATIENT
  Age: 54 Year
  Sex: Female

DRUGS (15)
  1. VX-950 (TELAPREVIR) [Suspect]
     Indication: CHRONIC HEPATITIS C
     Dosage: 2250 mg, qd
     Route: 048
     Dates: start: 20120306, end: 20120528
  2. RIBAVIRIN [Suspect]
     Indication: CHRONIC HEPATITIS C
     Dosage: 800 mg, qd
     Route: 048
     Dates: start: 20120306, end: 20120319
  3. RIBAVIRIN [Suspect]
     Dosage: 600 mg, qd
     Route: 048
     Dates: start: 20120320
  4. RIBAVIRIN [Suspect]
     Dosage: 400 mg, qd
     Route: 048
     Dates: start: 20120327
  5. RIBAVIRIN [Suspect]
     Dosage: 600 mg, qd
     Route: 048
  6. PEGINTERFERON ALFA-2B [Suspect]
     Indication: CHRONIC HEPATITIS C
     Dosage: 1.58 ?g/kg, qw
     Route: 058
     Dates: start: 20120306, end: 20120312
  7. PEGINTERFERON ALFA-2B [Suspect]
     Dosage: 0.8 ?g/kg, qw
     Route: 058
     Dates: start: 20120313
  8. PEGINTERFERON ALFA-2B [Suspect]
     Dosage: 1.56 ?g/kg, qw
     Route: 058
     Dates: start: 20120327
  9. PEGINTERFERON ALFA-2B [Suspect]
     Dosage: 1.5 ?g/kg, qw
     Route: 058
  10. RENIVACE [Concomitant]
     Dosage: 5 mg, qd
     Route: 048
  11. NORVASC [Concomitant]
     Dosage: 2.5 mg, qd
     Route: 048
  12. DIAPAX [Concomitant]
     Dosage: 5 mg, qd
     Route: 048
  13. SG                                 /01737201/ [Concomitant]
     Dosage: 1 g, qd
     Route: 048
  14. SG                                 /01737201/ [Concomitant]
     Dosage: 3 g, qd
     Route: 048
  15. AMLODIN [Concomitant]
     Dosage: 2.5 mg, qd
     Route: 048

REACTIONS (1)
  - Neutrophil count decreased [Recovered/Resolved]
